FAERS Safety Report 15597880 (Version 1)
Quarter: 2018Q4

REPORT INFORMATION
  Report Type: Spontaneous
  Country: US (occurrence: US)
  Receive Date: 20181105
  Receipt Date: 20181105
  Transmission Date: 20190205
  Serious: Yes (Hospitalization)
  Sender: FDA-Public Use
  Company Number: None

PATIENT
  Age: 58 Year
  Sex: Male

DRUGS (9)
  1. MAVYRET [Suspect]
     Active Substance: GLECAPREVIR\PIBRENTASVIR
     Indication: HEPATITIS C
     Route: 048
     Dates: start: 20180514, end: 20180718
  2. ALBUTEROL. [Concomitant]
     Active Substance: ALBUTEROL
  3. AMLODIPINE [Concomitant]
     Active Substance: AMLODIPINE BESYLATE
  4. IPRATROPIUM [Concomitant]
     Active Substance: IPRATROPIUM
  5. FUROSEMIDE. [Concomitant]
     Active Substance: FUROSEMIDE
  6. FAMOTIDNE [Concomitant]
  7. FLUTICASONE. [Concomitant]
     Active Substance: FLUTICASONE
  8. VILANTEROL [Concomitant]
     Active Substance: VILANTEROL TRIFENATATE
  9. GABAPENTIN. [Concomitant]
     Active Substance: GABAPENTIN

REACTIONS (5)
  - Acute hepatic failure [None]
  - Chronic obstructive pulmonary disease [None]
  - Human rhinovirus test positive [None]
  - Adrenal insufficiency [None]
  - Infection [None]

NARRATIVE: CASE EVENT DATE: 20180701
